FAERS Safety Report 24990612 (Version 3)
Quarter: 2025Q2

REPORT INFORMATION
  Report Type: Spontaneous
  Country: US (occurrence: US)
  Receive Date: 20250220
  Receipt Date: 20250529
  Transmission Date: 20250716
  Serious: Yes (Hospitalization)
  Sender: SCPHARMACEUTICALS
  Company Number: US-SCPHARMACEUTICALS-2025-SCPH-US000069

PATIENT

DRUGS (2)
  1. FUROSCIX [Suspect]
     Active Substance: FUROSEMIDE
     Indication: Fluid retention
     Route: 058
     Dates: start: 20250113, end: 20250113
  2. FUROSCIX [Suspect]
     Active Substance: FUROSEMIDE
     Route: 058
     Dates: start: 20250114, end: 20250114

REACTIONS (2)
  - Condition aggravated [Not Recovered/Not Resolved]
  - Drug ineffective [Not Recovered/Not Resolved]

NARRATIVE: CASE EVENT DATE: 20250117
